FAERS Safety Report 5443435-0 (Version None)
Quarter: 2007Q3

REPORT INFORMATION
  Report Type: 
  Country: None (occurrence: None)
  Receive Date: 20070905
  Receipt Date: 20070829
  Transmission Date: 20080115
  Serious: Yes (Hospitalization)
  Sender: FDA-Public Use
  Company Number: B0485740A

PATIENT
  Age: 75 Year
  Sex: Male

DRUGS (1)
  1. ZINACEF [Suspect]
     Route: 065
     Dates: start: 20061101, end: 20061101

REACTIONS (3)
  - HYPEROSMOLAR STATE [None]
  - RENAL FAILURE [None]
  - VASCULITIS [None]
